FAERS Safety Report 7517319-8 (Version None)
Quarter: 2011Q2

REPORT INFORMATION
  Report Type: 
  Country: None (occurrence: None)
  Receive Date: 20110601
  Receipt Date: 20110523
  Transmission Date: 20111010
  Serious: Yes (Other)
  Sender: FDA-Public Use
  Company Number: DE-B.I. PHARMACEUTICALS,INC./RIDGEFIELD-2011-DE-03242GD

PATIENT
  Age: 34 Year
  Sex: Female

DRUGS (6)
  1. LAMIVUDINE [Suspect]
     Indication: HIV INFECTION
  2. ENFUVIRTIDE [Suspect]
     Indication: HIV INFECTION
  3. NEVIRAPINE [Suspect]
     Indication: HIV INFECTION
  4. TIPRANAVIR [Suspect]
     Indication: HIV INFECTION
  5. ZIDOVUDINE [Suspect]
     Indication: HIV INFECTION
  6. TENOFOVIR DISOPROXIL FUMARATE [Suspect]
     Indication: HIV INFECTION

REACTIONS (3)
  - HEPATOTOXICITY [None]
  - VIRAL MUTATION IDENTIFIED [None]
  - CAESAREAN SECTION [None]
